FAERS Safety Report 13774260 (Version 4)
Quarter: 2017Q4

REPORT INFORMATION
  Report Type: Spontaneous
  Country: US (occurrence: US)
  Receive Date: 20170721
  Receipt Date: 20171127
  Transmission Date: 20180320
  Serious: Yes (Death, Hospitalization, Other)
  Sender: FDA-Public Use
  Company Number: US-BAYER-2017-134237

PATIENT
  Age: 65 Year
  Sex: Female

DRUGS (1)
  1. MIRENA [Suspect]
     Active Substance: LEVONORGESTREL
     Indication: GENITAL HAEMORRHAGE
     Dosage: 20 MCG/24HR, CONT
     Route: 015
     Dates: start: 20120926

REACTIONS (18)
  - Skin ulcer [None]
  - Elephantiasis [None]
  - Localised oedema [Unknown]
  - Lymphoedema [Unknown]
  - Localised infection [None]
  - Oedema peripheral [Unknown]
  - Pneumonia [Fatal]
  - Cardiac discomfort [Recovered/Resolved]
  - Pain [None]
  - Burning sensation [None]
  - Device use issue [None]
  - Off label use of device [None]
  - Pruritus [Unknown]
  - Abdominal discomfort [Recovered/Resolved]
  - Respiratory disorder [Fatal]
  - Rash [Unknown]
  - Fluid retention [Fatal]
  - Dyspnoea [Fatal]

NARRATIVE: CASE EVENT DATE: 20120926
